FAERS Safety Report 9056132 (Version 5)
Quarter: 2014Q1

REPORT INFORMATION
  Report Type: Report from Study
  Country: TR (occurrence: TR)
  Receive Date: 20130205
  Receipt Date: 20140210
  Transmission Date: 20141002
  Serious: Yes (Hospitalization)
  Sender: FDA-Public Use
  Company Number: PHHY2013TR005787

PATIENT
  Age: 52 Year
  Sex: Female

DRUGS (2)
  1. SANDOSTATIN LAR [Suspect]
     Indication: ACROMEGALY
     Dosage: 30 MG, ONCE EVERY 28 DAYS (4 WEEKS)
     Route: 030
     Dates: start: 201110
  2. SANDOSTATIN LAR [Suspect]
     Dosage: 30 MG, EVERY 25 DAYS
     Route: 030
     Dates: start: 201309

REACTIONS (2)
  - Brain mass [Unknown]
  - Insulin-like growth factor increased [Not Recovered/Not Resolved]
